FAERS Safety Report 6843918-2 (Version None)
Quarter: 2010Q3

REPORT INFORMATION
  Report Type: 
  Country: None (occurrence: None)
  Receive Date: 20100714
  Receipt Date: 20100714
  Transmission Date: 20110219
  Serious: Yes (Hospitalization)
  Sender: FDA-Public Use
  Company Number: None

PATIENT
  Sex: Male
  Weight: 95.6 kg

DRUGS (2)
  1. CYTARABINE [Suspect]
     Dosage: 3670 MG
  2. ETOPOSIDE [Suspect]
     Dosage: 1125 MG

REACTIONS (9)
  - BLOOD CREATININE INCREASED [None]
  - BLOOD UREA INCREASED [None]
  - DILATATION VENTRICULAR [None]
  - ELECTROCARDIOGRAM QT PROLONGED [None]
  - MUSCULOSKELETAL PAIN [None]
  - PERICARDIAL EFFUSION [None]
  - SEPTIC SHOCK [None]
  - VENTRICULAR DYSKINESIA [None]
  - VENTRICULAR HYPOKINESIA [None]
